FAERS Safety Report 10743893 (Version 1)
Quarter: 2015Q1

REPORT INFORMATION
  Report Type: Report from Study
  Country: US (occurrence: US)
  Receive Date: 20150128
  Receipt Date: 20150128
  Transmission Date: 20150721
  Serious: Yes (Hospitalization)
  Sender: FDA-Public Use
  Company Number: US-BIOGENIDEC-2015BI008303

PATIENT
  Age: 38 Year
  Sex: Female

DRUGS (1)
  1. TYSABRI [Suspect]
     Active Substance: NATALIZUMAB
     Indication: MULTIPLE SCLEROSIS
     Route: 042
     Dates: start: 20140717

REACTIONS (13)
  - Urinary tract infection [Recovered/Resolved]
  - Skin discolouration [Not Recovered/Not Resolved]
  - Drug dose omission [Recovered/Resolved]
  - General symptom [Not Recovered/Not Resolved]
  - Disturbance in attention [Not Recovered/Not Resolved]
  - Fatigue [Not Recovered/Not Resolved]
  - Upper respiratory tract infection [Recovered/Resolved]
  - Weight increased [Not Recovered/Not Resolved]
  - Mental impairment [Not Recovered/Not Resolved]
  - Viral infection [Recovered/Resolved]
  - Escherichia bacteraemia [Recovered/Resolved]
  - Nasopharyngitis [Recovered/Resolved]
  - Alopecia [Not Recovered/Not Resolved]

NARRATIVE: CASE EVENT DATE: 20140717
